FAERS Safety Report 12247424 (Version 4)
Quarter: 2018Q4

REPORT INFORMATION
  Report Type: Spontaneous
  Country: JP (occurrence: JP)
  Receive Date: 20160407
  Receipt Date: 20181119
  Transmission Date: 20190204
  Serious: Yes (Hospitalization)
  Sender: FDA-Public Use
  Company Number: JP-FRI-1000083766

PATIENT
  Age: 24 Year
  Sex: Female

DRUGS (13)
  1. RIVOTRIL [Suspect]
     Active Substance: CLONAZEPAM
     Indication: DEPRESSION
     Dosage: 0.3 G, BID
     Route: 048
     Dates: start: 20160209, end: 20160316
  2. ESCITALOPRAM OXALATE - BP [Suspect]
     Active Substance: ESCITALOPRAM OXALATE
     Indication: DEPRESSION
     Dosage: 10 MG, QD
     Route: 048
     Dates: start: 20160209, end: 20160316
  3. ESCITALOPRAM OXALATE - BP [Suspect]
     Active Substance: ESCITALOPRAM OXALATE
     Dosage: 10 MG, QD
     Route: 048
     Dates: start: 20160119, end: 20160128
  4. AMOXAN [Suspect]
     Active Substance: AMOXAPINE
     Dosage: 10 MG, OVERDOSE 10 MG X32 CAPSULES
     Route: 048
     Dates: start: 20160128, end: 20160128
  5. RIVOTRIL [Suspect]
     Active Substance: CLONAZEPAM
     Dosage: 0.3 G, OVERDOSE: 0.3 GRAM X 31 PACKS
     Route: 048
     Dates: start: 20160128, end: 20160128
  6. ESCITALOPRAM OXALATE - BP [Suspect]
     Active Substance: ESCITALOPRAM OXALATE
     Dosage: 10 MG, OVERDOSE: 10 MGX20TABLETS
     Route: 048
     Dates: start: 20160128, end: 20160128
  7. LENDORMIN [Concomitant]
     Active Substance: BROTIZOLAM
     Indication: INSOMNIA
     Dosage: .25 MG, QD
     Route: 048
     Dates: start: 20160128
  8. AMOXAN [Suspect]
     Active Substance: AMOXAPINE
     Indication: DEPRESSION
     Dosage: 10 MG, BID
     Route: 048
     Dates: start: 20160209, end: 20160316
  9. ABILIFY [Suspect]
     Active Substance: ARIPIPRAZOLE
     Dosage: 0.1 G, OVERDOSE: 0.1 GRAM X 31 PACKS
     Route: 048
     Dates: start: 20160128, end: 20160128
  10. AMOXAN [Suspect]
     Active Substance: AMOXAPINE
     Dosage: 10 MG, BID
     Route: 048
     Dates: start: 20160119, end: 20160128
  11. ABILIFY [Suspect]
     Active Substance: ARIPIPRAZOLE
     Indication: DEPRESSION
     Dosage: 0.1 G, BID
     Route: 048
     Dates: start: 20160209, end: 20160316
  12. RIVOTRIL [Suspect]
     Active Substance: CLONAZEPAM
     Dosage: 0.3 G, BID
     Route: 048
     Dates: start: 20160119, end: 20160128
  13. ABILIFY [Suspect]
     Active Substance: ARIPIPRAZOLE
     Dosage: 0.1 G, BID
     Route: 048
     Dates: start: 20160119, end: 20160128

REACTIONS (2)
  - Overdose [Recovered/Resolved]
  - Altered state of consciousness [Recovered/Resolved]

NARRATIVE: CASE EVENT DATE: 20160128
